FAERS Safety Report 10744794 (Version 1)
Quarter: 2015Q1

REPORT INFORMATION
  Report Type: Spontaneous
  Country: US (occurrence: None)
  Receive Date: 20150126
  Receipt Date: 20150126
  Transmission Date: 20150721
  Serious: No
  Sender: FDA-Public Use
  Company Number: None

PATIENT
  Age: 25 Year
  Sex: Male
  Weight: 88 kg

DRUGS (1)
  1. TAMIFLU [Suspect]
     Active Substance: OSELTAMIVIR PHOSPHATE
     Indication: INFLUENZA
     Dosage: 1 PILL
     Route: 048
     Dates: start: 20141226, end: 20141228

REACTIONS (7)
  - Psychiatric symptom [None]
  - Paranoia [None]
  - Hostility [None]
  - Anxiety [None]
  - Insomnia [None]
  - Agitation [None]
  - Coordination abnormal [None]

NARRATIVE: CASE EVENT DATE: 20141226
